FAERS Safety Report 10268880 (Version 2)
Quarter: 2014Q2

REPORT INFORMATION
  Report Type: Spontaneous
  Country: JP (occurrence: JP)
  Receive Date: 20140630
  Receipt Date: 20140630
  Transmission Date: 20141212
  Serious: Yes (Other)
  Sender: FDA-Public Use
  Company Number: PHHY2014JP066152

PATIENT
  Age: 72 Year
  Sex: Female

DRUGS (3)
  1. EQUA [Suspect]
     Indication: DIABETES MELLITUS
     Dosage: 100 MG, DAILY
     Route: 048
     Dates: start: 2009, end: 20130909
  2. METFORMIN [Suspect]
     Indication: DIABETES MELLITUS
     Dosage: 500 MG, DAILY
     Route: 048
     Dates: start: 2009
  3. KLARICID [Concomitant]
     Dosage: 200 MG, UNK
     Route: 048

REACTIONS (1)
  - Hypoglycaemia [Recovered/Resolved]
